FAERS Safety Report 15143934 (Version 1)
Quarter: 2018Q3

REPORT INFORMATION
  Report Type: Spontaneous
  Country: HR (occurrence: HR)
  Receive Date: 20180713
  Receipt Date: 20180713
  Transmission Date: 20181010
  Serious: Yes (Other)
  Sender: FDA-Public Use
  Company Number: HR-BAYER-2018-132326

PATIENT
  Sex: Male

DRUGS (1)
  1. BETAFERON COMBIPACK [Suspect]
     Active Substance: INTERFERON BETA-1B
     Dosage: UNK

REACTIONS (1)
  - Squamous cell carcinoma of skin [None]
